FAERS Safety Report 13371071 (Version 1)
Quarter: 2017Q1

REPORT INFORMATION
  Report Type: Spontaneous
  Country: US (occurrence: US)
  Receive Date: 20170324
  Receipt Date: 20170324
  Transmission Date: 20170429
  Serious: No
  Sender: FDA-Public Use
  Company Number: US-WARNER CHILCOTT-2016-000921

PATIENT
  Age: 3 Year

DRUGS (1)
  1. ESTRACE [Suspect]
     Active Substance: ESTRADIOL
     Dosage: UNK, UNKNOWN
     Route: 065

REACTIONS (1)
  - Drug prescribing error [Unknown]
